FAERS Safety Report 5143852-2 (Version None)
Quarter: 2006Q4

REPORT INFORMATION
  Report Type: 
  Country: None (occurrence: None)
  Receive Date: 20061106
  Receipt Date: 20061025
  Transmission Date: 20070319
  Serious: Yes (Other)
  Sender: FDA-Public Use
  Company Number: PHHO2006NZ17784

PATIENT
  Age: 21 Year
  Sex: Male

DRUGS (5)
  1. CLOZARIL [Suspect]
     Indication: SCHIZOPHRENIA
     Dosage: 300 MG, QN
     Route: 048
     Dates: start: 20040611, end: 20060901
  2. VALPROATE SODIUM [Concomitant]
     Dosage: 100 MG, QN
     Route: 048
  3. LOSEC [Concomitant]
     Dosage: 20 MG
  4. COGENTIN [Concomitant]
  5. LOZOL [Concomitant]

REACTIONS (2)
  - ERECTILE DYSFUNCTION [None]
  - SALIVARY HYPERSECRETION [None]
